FAERS Safety Report 12154186 (Version 1)
Quarter: 2016Q1

REPORT INFORMATION
  Report Type: Spontaneous
  Country: SE (occurrence: SE)
  Receive Date: 20160307
  Receipt Date: 20160307
  Transmission Date: 20160526
  Serious: Yes (Other)
  Sender: FDA-Public Use
  Company Number: SE-ROCHE-1721406

PATIENT
  Age: 24 Year
  Sex: Female

DRUGS (3)
  1. XOLAIR [Suspect]
     Active Substance: OMALIZUMAB
     Route: 065
     Dates: start: 201511
  2. XOLAIR [Suspect]
     Active Substance: OMALIZUMAB
     Indication: ASTHMA
     Route: 065
     Dates: start: 201509
  3. XOLAIR [Suspect]
     Active Substance: OMALIZUMAB
     Route: 065
     Dates: start: 201512, end: 201512

REACTIONS (9)
  - Injection site swelling [Recovered/Resolved]
  - Rash [Unknown]
  - Skin fissures [Unknown]
  - Skin depigmentation [Not Recovered/Not Resolved]
  - Erythema [Unknown]
  - Injection site vesicles [Not Recovered/Not Resolved]
  - Injection site erythema [Recovered/Resolved]
  - Blister [Unknown]
  - Peripheral swelling [Unknown]

NARRATIVE: CASE EVENT DATE: 201511
